FAERS Safety Report 4824575-3 (Version None)
Quarter: 2005Q4

REPORT INFORMATION
  Report Type: 
  Country: None (occurrence: None)
  Receive Date: 20051108
  Receipt Date: 20051024
  Transmission Date: 20060501
  Serious: Yes (Hospitalization)
  Sender: FDA-Public Use
  Company Number: GBS051018684

PATIENT
  Age: 36 Year
  Sex: Male

DRUGS (3)
  1. SOMATROPIN [Suspect]
     Dosage: 6 IU
  2. TESTOSTERONE PROPIONATE [Concomitant]
  3. STANOZOLOL [Concomitant]

REACTIONS (6)
  - DYSPNOEA [None]
  - INTENTIONAL DRUG MISUSE [None]
  - LARYNGEAL OEDEMA [None]
  - LARYNGOCELE [None]
  - SELF-MEDICATION [None]
  - STRIDOR [None]
